FAERS Safety Report 6749156-6 (Version None)
Quarter: 2010Q2

REPORT INFORMATION
  Report Type: 
  Country: None (occurrence: None)
  Receive Date: 20100601
  Receipt Date: 20100519
  Transmission Date: 20101027
  Serious: Yes (Hospitalization)
  Sender: FDA-Public Use
  Company Number: US-BAYER-201021862NA

PATIENT
  Age: 58 Year
  Sex: Female

DRUGS (3)
  1. BETASERON [Suspect]
     Indication: DRUG USE FOR UNKNOWN INDICATION
     Route: 058
  2. BETASERON [Suspect]
     Route: 058
     Dates: start: 20050101, end: 20090901
  3. TYSABRI [Concomitant]
     Dates: start: 20091101

REACTIONS (2)
  - BONE PAIN [None]
  - BRONCHITIS [None]
